FAERS Safety Report 9285773 (Version 1)
Quarter: 2013Q2

REPORT INFORMATION
  Report Type: Spontaneous
  Country: US (occurrence: None)
  Receive Date: 20130510
  Receipt Date: 20130510
  Transmission Date: 20140414
  Serious: Yes (Other)
  Sender: FDA-Public Use
  Company Number: None

PATIENT
  Sex: 0

DRUGS (1)
  1. VITAMINS [Suspect]
     Route: 030
     Dates: start: 20130115, end: 20130115

REACTIONS (2)
  - Product label issue [None]
  - Product contamination [None]
